FAERS Safety Report 8783317 (Version 2)
Quarter: 2012Q4

REPORT INFORMATION
  Report Type: Report from Study
  Country: US (occurrence: US)
  Receive Date: 20120913
  Receipt Date: 20121218
  Transmission Date: 20130627
  Serious: Yes (Other)
  Sender: FDA-Public Use
  Company Number: US-VERTEX PHARMACEUTICAL INC.-AE-2012-008382

PATIENT
  Age: 57 Year
  Sex: Male
  Weight: 91 kg

DRUGS (8)
  1. VX-950 (TELAPREVIR) [Suspect]
     Indication: HEPATITIS C
     Dosage: 750 mg, tid
     Route: 048
     Dates: start: 2012, end: 20121201
  2. PEGASYS [Suspect]
     Indication: HEPATITIS C
     Dosage: UNK
  3. RIBAVIRIN [Suspect]
     Indication: HEPATITIS C
     Dosage: 2 DF, qd
  4. RIBAVIRIN [Suspect]
     Dosage: UNK
     Dates: start: 20120806
  5. VITAMIN B COMPLEX [Concomitant]
  6. CALCIUM [Concomitant]
  7. LEXAPRO [Concomitant]
  8. VITAMIN D /00107901/ [Concomitant]

REACTIONS (9)
  - Anaemia [Unknown]
  - Visual field defect [Unknown]
  - Insomnia [Unknown]
  - Confusional state [Unknown]
  - Pollakiuria [Unknown]
  - Dizziness [Unknown]
  - Pain [Unknown]
  - Fatigue [Unknown]
  - Diarrhoea [Unknown]
